FAERS Safety Report 10653215 (Version 2)
Quarter: 2016Q1

REPORT INFORMATION
  Report Type: Spontaneous
  Country: IN (occurrence: IN)
  Receive Date: 20141215
  Receipt Date: 20160322
  Transmission Date: 20160525
  Serious: Yes (Other)
  Sender: FDA-Public Use
  Company Number: IN-PFIZER INC-2014336632

PATIENT
  Age: 27 Year
  Sex: Female

DRUGS (8)
  1. PARACETAMOL [Concomitant]
     Active Substance: ACETAMINOPHEN
     Indication: LOWER RESPIRATORY TRACT INFECTION
     Dosage: 500 MG, UNK
     Route: 048
  2. AZITHROMYCIN ANHYDROUS. [Suspect]
     Active Substance: AZITHROMYCIN ANHYDROUS
     Indication: LOWER RESPIRATORY TRACT INFECTION
     Dosage: 500 MG, UNK
     Route: 042
  3. PYRIDOSTIGMINE [Concomitant]
     Active Substance: PYRIDOSTIGMINE
     Indication: THYMOMA
  4. PANTOPRAZOLE [Concomitant]
     Active Substance: PANTOPRAZOLE SODIUM
     Indication: LOWER RESPIRATORY TRACT INFECTION
     Dosage: 40 MG, UNK
     Route: 042
  5. PYRIDOSTIGMINE [Concomitant]
     Active Substance: PYRIDOSTIGMINE
     Indication: MYASTHENIA GRAVIS
     Dosage: 60 MG, 4X/DAY
  6. CEFTRIAXONE. [Concomitant]
     Active Substance: CEFTRIAXONE
     Indication: LOWER RESPIRATORY TRACT INFECTION
     Dosage: 1 G, UNK
     Route: 042
  7. PREDNISOLONE. [Concomitant]
     Active Substance: PREDNISOLONE
     Indication: MYASTHENIA GRAVIS
     Dosage: 55 MG, 1X/DAY
  8. PREDNISOLONE. [Concomitant]
     Active Substance: PREDNISOLONE
     Indication: THYMOMA

REACTIONS (4)
  - Areflexia [Recovered/Resolved]
  - Cyanosis [Recovered/Resolved]
  - Myasthenia gravis crisis [Recovered/Resolved]
  - Hypotonia [Recovered/Resolved]
